FAERS Safety Report 12842677 (Version 1)
Quarter: 2016Q4

REPORT INFORMATION
  Report Type: Other
  Country: IN (occurrence: IN)
  Receive Date: 20161013
  Receipt Date: 20161013
  Transmission Date: 20170207
  Serious: Yes (Other)
  Sender: FDA-Public Use
  Company Number: IN-NOVEL LABORATORIES, INC-2016-04594

PATIENT
  Age: 44 Year
  Sex: Female

DRUGS (1)
  1. LINEZOLID. [Suspect]
     Active Substance: LINEZOLID
     Indication: PEMPHIGUS
     Route: 065

REACTIONS (1)
  - Drug resistance [Unknown]
